FAERS Safety Report 18516023 (Version 1)
Quarter: 2020Q4

REPORT INFORMATION
  Report Type: Spontaneous
  Country: US (occurrence: US)
  Receive Date: 20201117
  Receipt Date: 20201117
  Transmission Date: 20210114
  Serious: Yes (Hospitalization)
  Sender: FDA-Public Use
  Company Number: None

PATIENT
  Sex: Male

DRUGS (2)
  1. ADAKVEO [Suspect]
     Active Substance: CRIZANLIZUMAB-TMCA
     Indication: SICKLE CELL DISEASE
     Route: 042
     Dates: start: 20201021
  2. DIPHENHYDRAMINE (1ML/VL) [Suspect]
     Active Substance: DIPHENHYDRAMINE
     Indication: SICKLE CELL DISEASE
     Dosage: ?          OTHER FREQUENCY:EVERY4HOURS ;?
     Route: 042
     Dates: start: 20201021

REACTIONS (1)
  - Sickle cell anaemia with crisis [None]
